FAERS Safety Report 6202610-8 (Version None)
Quarter: 2009Q2

REPORT INFORMATION
  Report Type: 
  Country: None (occurrence: None)
  Receive Date: 20090521
  Receipt Date: 20090521
  Transmission Date: 20091009
  Serious: Yes (Other)
  Sender: FDA-Public Use
  Company Number: None

PATIENT
  Age: 33 Year
  Sex: Female
  Weight: 192.7787 kg

DRUGS (3)
  1. TOPIRAMATE [Suspect]
     Indication: CONVULSION
     Dosage: 250 MG 3 TIMES PER DAY PO
     Route: 048
     Dates: start: 20090517, end: 20090519
  2. TOPIRAMATE [Suspect]
     Indication: HEADACHE
     Dosage: 250 MG 3 TIMES PER DAY PO
     Route: 048
     Dates: start: 20090517, end: 20090519
  3. TOPIRAMATE [Suspect]
     Indication: PROPHYLAXIS
     Dosage: 250 MG 3 TIMES PER DAY PO
     Route: 048
     Dates: start: 20090517, end: 20090519

REACTIONS (5)
  - AURA [None]
  - DYSPHEMIA [None]
  - HEADACHE [None]
  - PRODUCT SUBSTITUTION ISSUE [None]
  - TREMOR [None]
